FAERS Safety Report 13776914 (Version 1)
Quarter: 2017Q3

REPORT INFORMATION
  Report Type: Spontaneous
  Country: US (occurrence: US)
  Receive Date: 20170721
  Receipt Date: 20170721
  Transmission Date: 20171127
  Serious: Yes (Disabling, Other)
  Sender: FDA-Public Use
  Company Number: None

PATIENT
  Age: 74 Year
  Sex: Male
  Weight: 153 kg

DRUGS (15)
  1. LANSOPRAZOLE. [Concomitant]
     Active Substance: LANSOPRAZOLE
  2. METFORMIN [Concomitant]
     Active Substance: METFORMIN HYDROCHLORIDE
  3. METOPROLOL SUCC ER [Concomitant]
     Active Substance: METOPROLOL SUCCINATE
  4. ISOSORBIDE. [Concomitant]
     Active Substance: ISOSORBIDE
  5. VITAMIN C [Concomitant]
     Active Substance: ASCORBIC ACID
  6. JANUVA [Concomitant]
  7. AMLODIPINE BESYLATE. [Concomitant]
     Active Substance: AMLODIPINE BESYLATE
  8. VASCEPA [Concomitant]
     Active Substance: ICOSAPENT ETHYL
  9. FISH OIL [Concomitant]
     Active Substance: FISH OIL
  10. INVOKANA [Suspect]
     Active Substance: CANAGLIFLOZIN
     Indication: TYPE 2 DIABETES MELLITUS
     Dosage: ?          OTHER STRENGTH:MG/MG;QUANTITY:1 TABLET(S);?
     Route: 048
     Dates: start: 20151020
  11. CENTRUM SILVER [Concomitant]
     Active Substance: MINERALS\VITAMINS
  12. BAYER ASPIRIN [Concomitant]
     Active Substance: ASPIRIN
  13. FENOFIBRATE. [Concomitant]
     Active Substance: FENOFIBRATE
  14. INVOKANA [Concomitant]
     Active Substance: CANAGLIFLOZIN
  15. OMEGA-3 ACIDS [Concomitant]
     Active Substance: OMEGA-3 FATTY ACIDS

REACTIONS (1)
  - Localised infection [None]

NARRATIVE: CASE EVENT DATE: 20170614
